FAERS Safety Report 13259101 (Version 15)
Quarter: 2019Q1

REPORT INFORMATION
  Report Type: Spontaneous
  Country: BR (occurrence: BR)
  Receive Date: 20170222
  Receipt Date: 20190128
  Transmission Date: 20190417
  Serious: Yes (Other)
  Sender: FDA-Public Use
  Company Number: BR-GLAXOSMITHKLINE-BR2015GSK049786

PATIENT
  Age: 55 Year
  Sex: Female
  Weight: 49 kg

DRUGS (7)
  1. VOLTAREN [Concomitant]
     Active Substance: DICLOFENAC SODIUM
     Indication: PRODUCT USED FOR UNKNOWN INDICATION
     Dosage: UNK UNK, Z (2 TABLETS ON MORNING, 1 TABLET ON LUNCH AND 2 TABLETS AT NIGHT)
     Dates: end: 20160418
  2. REUQUINOL (HYDROXYCHLOROQUINE SULFATE) [Concomitant]
     Indication: PRODUCT USED FOR UNKNOWN INDICATION
     Dosage: UNK
  3. ACETYLSALICYLIC ACID [Concomitant]
     Active Substance: ASPIRIN
     Indication: PRODUCT USED FOR UNKNOWN INDICATION
     Dosage: UNK
  4. PREDNISONE. [Concomitant]
     Active Substance: PREDNISONE
     Indication: PRODUCT USED FOR UNKNOWN INDICATION
     Dosage: 10 MG, UNK
  5. BENLYSTA [Suspect]
     Active Substance: BELIMUMAB
     Indication: SYSTEMIC LUPUS ERYTHEMATOSUS
     Dosage: 520 MG, UNK
     Dates: start: 20150318
  6. MYCOPHENOLATE [Concomitant]
     Active Substance: MYCOPHENOLIC ACID
     Indication: PRODUCT USED FOR UNKNOWN INDICATION
     Dosage: UNK
  7. CALCIUM [Concomitant]
     Active Substance: CALCIUM
     Indication: PRODUCT USED FOR UNKNOWN INDICATION
     Dosage: UNK

REACTIONS (21)
  - Systemic lupus erythematosus [Unknown]
  - Urinary tract infection [Unknown]
  - Skin haemorrhage [Unknown]
  - Overdose [Unknown]
  - Cough [Unknown]
  - Weight fluctuation [Unknown]
  - Circumstance or information capable of leading to medication error [Recovered/Resolved]
  - Decreased immune responsiveness [Unknown]
  - Haemorrhage [Unknown]
  - Erythema [Unknown]
  - Pyrexia [Unknown]
  - Product availability issue [Unknown]
  - Asthenia [Unknown]
  - Product dose omission [Recovered/Resolved]
  - Condition aggravated [Unknown]
  - Bone pain [Unknown]
  - Rash [Unknown]
  - Alopecia [Unknown]
  - Memory impairment [Unknown]
  - Dizziness [Unknown]
  - Inappropriate schedule of product administration [Recovered/Resolved]

NARRATIVE: CASE EVENT DATE: 20160725
